FAERS Safety Report 9282628 (Version 2)
Quarter: 2013Q2

REPORT INFORMATION
  Report Type: Spontaneous
  Country: JP (occurrence: JP)
  Receive Date: 20130510
  Receipt Date: 20130523
  Transmission Date: 20140414
  Serious: Yes (Hospitalization, Other)
  Sender: FDA-Public Use
  Company Number: PHHY2013JP043813

PATIENT
  Age: 69 Year
  Sex: Female
  Weight: 56 kg

DRUGS (7)
  1. COMTAN [Suspect]
     Indication: PARKINSON^S DISEASE
     Dosage: 300 MG, DAILY
     Route: 048
     Dates: start: 20130123
  2. REQUIP [Suspect]
     Indication: PARKINSON^S DISEASE
     Dosage: 2 MG, DAILY
     Route: 048
     Dates: start: 20121205, end: 20130122
  3. REQUIP [Suspect]
     Dosage: 8 MG, DAILY
     Route: 048
     Dates: start: 20130123, end: 20130405
  4. NEODOPASTON [Suspect]
     Indication: PARKINSON^S DISEASE
     Dosage: 300 MG, DAILY
     Route: 048
     Dates: start: 20121219, end: 20121225
  5. NEODOPASTON [Suspect]
     Dosage: 375 MG, DAILY
     Route: 048
     Dates: start: 20121226, end: 20130108
  6. NEODOPASTON [Suspect]
     Dosage: 750 MG, DAILY
     Route: 048
     Dates: start: 20130109
  7. FP [Suspect]
     Indication: PARKINSON^S DISEASE
     Dosage: 5 MG, DAILY
     Route: 048
     Dates: start: 20121226

REACTIONS (11)
  - Mental disorder [Not Recovered/Not Resolved]
  - Decubitus ulcer [Unknown]
  - Infection [Unknown]
  - Concomitant disease progression [Unknown]
  - Fall [Unknown]
  - Gait disturbance [Unknown]
  - Scar [Unknown]
  - Tooth disorder [Not Recovered/Not Resolved]
  - Hallucination [Not Recovered/Not Resolved]
  - Rheumatic disorder [None]
  - Condition aggravated [None]
